FAERS Safety Report 8767352 (Version 1)
Quarter: 2012Q4

REPORT INFORMATION
  Report Type: 
  Country: US (occurrence: US)
  Receive Date: 20120904
  Receipt Date: 20120904
  Transmission Date: 20130627
  Serious: Yes (Other)
  Sender: FDA-Public Use
  Company Number: US-SANOFI-AVENTIS-2012SA060712

PATIENT
  Age: 55 Year
  Sex: Female

DRUGS (7)
  1. LANTUS [Suspect]
     Indication: TYPE 2 DIABETES MELLITUS
     Dosage: Dose:100 unit(s)
     Route: 058
     Dates: start: 2012
  2. SOLOSTAR [Suspect]
     Indication: TYPE 2 DIABETES MELLITUS
     Dates: start: 2012
  3. WARFARIN [Concomitant]
  4. LOVENOX [Concomitant]
  5. NOVOLOG [Concomitant]
  6. HUMULIN R [Concomitant]
  7. VITAMIN K [Concomitant]

REACTIONS (2)
  - Myocardial infarction [Unknown]
  - Device leakage [None]
